FAERS Safety Report 23457926 (Version 1)
Quarter: 2024Q1

REPORT INFORMATION
  Report Type: Spontaneous
  Country: JP (occurrence: None)
  Receive Date: 20240130
  Receipt Date: 20240130
  Transmission Date: 20240409
  Serious: Yes (Death)
  Sender: FDA-Public Use
  Company Number: 2024A016892

PATIENT
  Age: 87 Year
  Sex: Male
  Weight: 101 kg

DRUGS (11)
  1. IMFINZI [Suspect]
     Active Substance: DURVALUMAB
     Indication: Bile duct cancer
     Dosage: DOSE UNKNOWN1500.0MG UNKNOWN
     Route: 041
     Dates: start: 20240105, end: 20240105
  2. SYMBICORT [Concomitant]
     Active Substance: BUDESONIDE\FORMOTEROL FUMARATE DIHYDRATE
     Dosage: 30 DOSES
     Route: 055
  3. GEMCITABINE HYDROCHLORIDE [Concomitant]
     Active Substance: GEMCITABINE HYDROCHLORIDE
     Indication: Bile duct cancer
     Route: 065
     Dates: start: 20240105
  4. CISPLATIN [Concomitant]
     Active Substance: CISPLATIN
     Indication: Bile duct cancer
     Dosage: DOSE UNKNOWN
     Route: 065
     Dates: start: 20240105
  5. MAGNESIUM OXIDE [Concomitant]
     Active Substance: MAGNESIUM OXIDE
     Dosage: AFTER BREAKFAST AND EVENING MEAL
     Route: 048
  6. PANTETHINE [Concomitant]
     Active Substance: PANTETHINE
     Dosage: AFTER BREAKFAST AND EVENING MEAL
     Route: 048
  7. OLMESARTAN MEDOXOMIL [Concomitant]
     Active Substance: OLMESARTAN MEDOXOMIL
     Dosage: AFTER BREAKFAST
     Route: 048
  8. AMLODIPINE BESYLATE [Concomitant]
     Active Substance: AMLODIPINE BESYLATE
     Dosage: AFTER BREAKFAST
     Route: 048
  9. RYBELSUS [Concomitant]
     Active Substance: SEMAGLUTIDE
     Dosage: AT THE TIME OF AWAKENING
     Route: 048
  10. HEPAACT [Concomitant]
     Dosage: AFTER BREAKFAST, LUNCH AND EVENING MEAL
     Route: 048
  11. SILODOSIN [Concomitant]
     Active Substance: SILODOSIN
     Dosage: AFTER BREAKFAST AND EVENING MEAL
     Route: 048

REACTIONS (1)
  - Autoimmune myositis [Fatal]

NARRATIVE: CASE EVENT DATE: 20240112
